FAERS Safety Report 26060839 (Version 1)
Quarter: 2025Q4

REPORT INFORMATION
  Report Type: Spontaneous
  Country: US (occurrence: US)
  Receive Date: 20251118
  Receipt Date: 20251118
  Transmission Date: 20260117
  Serious: Yes (Other)
  Sender: PFIZER
  Company Number: US-PFIZER INC-PV202500131316

PATIENT
  Age: 18 Year
  Sex: Female

DRUGS (4)
  1. INFLIXIMAB [Suspect]
     Active Substance: INFLIXIMAB
     Indication: Crohn^s disease
     Dosage: 20 MG/KG, EVERY 2-3WEEKS
  2. INFLIXIMAB [Suspect]
     Active Substance: INFLIXIMAB
     Dosage: 20 MG/KG, EVERY 2-4 WEEKS
  3. INFLIXIMAB [Suspect]
     Active Substance: INFLIXIMAB
     Dosage: 30 MG/KG, EVERY 4 WEEKS
  4. METHOTREXATE SODIUM [Suspect]
     Active Substance: METHOTREXATE SODIUM
     Indication: Crohn^s disease
     Dosage: UNK

REACTIONS (2)
  - Lupus-like syndrome [Unknown]
  - Psoriasis [Unknown]
